FAERS Safety Report 8271668-7 (Version None)
Quarter: 2012Q2

REPORT INFORMATION
  Report Type: 
  Country: None (occurrence: None)
  Receive Date: 20120410
  Receipt Date: 20120402
  Transmission Date: 20120825
  Serious: Yes (Hospitalization)
  Sender: FDA-Public Use
  Company Number: PHEH2012US007197

PATIENT
  Sex: Female

DRUGS (2)
  1. EXFORGE [Suspect]
     Dosage: 1 DF (320/10 MG), QD
  2. INSULIN [Concomitant]

REACTIONS (4)
  - DRUG INTOLERANCE [None]
  - JOINT SWELLING [None]
  - FLUID RETENTION [None]
  - TINNITUS [None]
